FAERS Safety Report 10219828 (Version 1)
Quarter: 2014Q2

REPORT INFORMATION
  Report Type: Spontaneous
  Country: US (occurrence: None)
  Receive Date: 20140603
  Receipt Date: 20140603
  Transmission Date: 20141212
  Serious: Yes (Hospitalization, Other)
  Sender: FDA-Public Use
  Company Number: SYM-2014-21244

PATIENT
  Age: 44 Year
  Sex: Female

DRUGS (1)
  1. SOLODYN [Suspect]
     Indication: ACNE
     Route: 048
     Dates: start: 201005, end: 201106

REACTIONS (3)
  - Hepatic enzyme increased [None]
  - Lymphoma [None]
  - Hepatic cancer [None]
